FAERS Safety Report 16394085 (Version 2)
Quarter: 2019Q3

REPORT INFORMATION
  Report Type: Spontaneous
  Country: JP (occurrence: JP)
  Receive Date: 20190605
  Receipt Date: 20190708
  Transmission Date: 20191004
  Serious: Yes (Death)
  Sender: FDA-Public Use
  Company Number: JP-CELGENEUS-JPN-20190600229

PATIENT
  Age: 75 Year
  Sex: Male
  Weight: 67.9 kg

DRUGS (12)
  1. SULFAMETHOXAZOLE W/TRIMETHOPRIM [Concomitant]
     Active Substance: SULFAMETHOXAZOLE\TRIMETHOPRIM
     Indication: PNEUMONIA BACTERIAL
     Dosage: 4 TABLET
     Route: 065
     Dates: start: 20190220
  2. TAZOBACTAM/PIPERACILLIN HYDRATE [Concomitant]
     Dosage: 11.25 GRAM
     Route: 065
     Dates: start: 20190218
  3. FILGRASTIM [Concomitant]
     Active Substance: FILGRASTIM
     Indication: FEBRILE NEUTROPENIA
     Dosage: 75 MICROGRAM
     Route: 041
     Dates: start: 20190220, end: 20190223
  4. TAZOBACTAM/PIPERACILLIN HYDRATE [Concomitant]
     Dosage: 9 GRAM
     Route: 065
     Dates: start: 20190220
  5. ABRAXANE [Suspect]
     Active Substance: PACLITAXEL
     Indication: LUNG SQUAMOUS CELL CARCINOMA METASTATIC
     Dosage: 160 MILLIGRAM
     Route: 041
     Dates: start: 20190209, end: 20190209
  6. KEYTRUDA [Suspect]
     Active Substance: PEMBROLIZUMAB
     Indication: LUNG SQUAMOUS CELL CARCINOMA METASTATIC
     Dosage: 200 MILLIGRAM
     Route: 041
     Dates: start: 20190209, end: 20190209
  7. OXYGEN. [Concomitant]
     Active Substance: OXYGEN
     Indication: RESPIRATORY FAILURE
     Dosage: 5 LITERS
     Route: 065
     Dates: start: 20190216
  8. TAZOBACTAM/PIPERACILLIN HYDRATE [Concomitant]
     Indication: PNEUMONIA ASPIRATION
     Dosage: 6.75 GRAM
     Route: 065
     Dates: start: 20190217, end: 20190222
  9. TAZOBACTAM/PIPERACILLIN HYDRATE [Concomitant]
     Dosage: 6.75 GRAM
     Route: 065
     Dates: start: 20190222
  10. PREDNISOLONE SODIUM SUCCINATE [Concomitant]
     Active Substance: PREDNISOLONE SODIUM SUCCINATE
     Indication: PNEUMONIA
     Dosage: 30 MILLIGRAM
     Route: 065
     Dates: start: 20190217, end: 20190223
  11. TAZOBACTAM/PIPERACILLIN HYDRATE [Concomitant]
     Dosage: 6.75 GRAM
     Route: 065
     Dates: start: 20190219
  12. CARBOPLATIN. [Suspect]
     Active Substance: CARBOPLATIN
     Indication: LUNG SQUAMOUS CELL CARCINOMA METASTATIC
     Dosage: 400 MILLIGRAM
     Route: 041
     Dates: start: 20190209, end: 20190209

REACTIONS (4)
  - Decreased appetite [Not Recovered/Not Resolved]
  - Febrile neutropenia [Fatal]
  - Anaemia [Not Recovered/Not Resolved]
  - Pneumonia aspiration [Fatal]

NARRATIVE: CASE EVENT DATE: 20190212
